FAERS Safety Report 16565845 (Version 5)
Quarter: 2024Q3

REPORT INFORMATION
  Report Type: Report from Study
  Country: US (occurrence: US)
  Receive Date: 20190712
  Receipt Date: 20240909
  Transmission Date: 20241016
  Serious: Yes (Hospitalization)
  Sender: ABBVIE
  Company Number: US-ABBVIE-18P-163-2250274-00

PATIENT
  Age: 13 Year
  Sex: Male
  Weight: 36 kg

DRUGS (9)
  1. HUMIRA [Suspect]
     Active Substance: ADALIMUMAB
     Indication: Crohn^s disease
     Route: 058
     Dates: start: 20171017
  2. MERCAPTOPURINE [Suspect]
     Active Substance: MERCAPTOPURINE
     Indication: Crohn^s disease
     Route: 048
     Dates: start: 20150714, end: 20170706
  3. APRISO [Concomitant]
     Active Substance: MESALAMINE
     Indication: Crohn^s disease
     Dosage: TIME INTERVAL: 0.33333333 DAYS
     Route: 048
     Dates: start: 20141202
  4. MIRALAX [Concomitant]
     Active Substance: POLYETHYLENE GLYCOL 3350
     Indication: Constipation
     Route: 048
     Dates: start: 20141216
  5. FERROUS SULFATE [Concomitant]
     Active Substance: FERROUS SULFATE
     Indication: Iron deficiency anaemia
     Route: 048
     Dates: start: 20141209, end: 20180129
  6. VITAMINS [Concomitant]
     Active Substance: VITAMINS
     Indication: Vitamin supplementation
     Route: 048
     Dates: start: 20141209
  7. ROWASA [Concomitant]
     Active Substance: MESALAMINE
     Indication: Crohn^s disease
     Dosage: TIME INTERVAL: AS NECESSARY
     Route: 054
     Dates: start: 20170509
  8. RANITIDINE [Concomitant]
     Active Substance: RANITIDINE
     Indication: Crohn^s disease
     Route: 048
     Dates: start: 20170806, end: 20170807
  9. RANITIDINE [Concomitant]
     Active Substance: RANITIDINE
     Indication: Crohn^s disease
     Route: 048
     Dates: start: 20170807, end: 20180205

REACTIONS (1)
  - Anaemia of chronic disease [Recovered/Resolved]

NARRATIVE: CASE EVENT DATE: 20180206
